FAERS Safety Report 8121114-9 (Version None)
Quarter: 2012Q1

REPORT INFORMATION
  Report Type: 
  Country: None (occurrence: None)
  Receive Date: 20120208
  Receipt Date: 20120130
  Transmission Date: 20120608
  Serious: Yes (Other)
  Sender: FDA-Public Use
  Company Number: JP-BRISTOL-MYERS SQUIBB COMPANY-16377343

PATIENT

DRUGS (1)
  1. TAXOL [Suspect]

REACTIONS (2)
  - CYSTOID MACULAR OEDEMA [None]
  - OCULAR VASCULAR DISORDER [None]
